FAERS Safety Report 12382708 (Version 1)
Quarter: 2016Q2

REPORT INFORMATION
  Report Type: Spontaneous
  Country: FR (occurrence: FR)
  Receive Date: 20160518
  Receipt Date: 20160518
  Transmission Date: 20160815
  Serious: Yes (Hospitalization)
  Sender: FDA-Public Use
  Company Number: FR-SA-2016SA095487

PATIENT
  Age: 77 Year
  Sex: Male

DRUGS (5)
  1. LASILIX FAIBLE [Suspect]
     Active Substance: FUROSEMIDE
     Indication: HYPERTENSION
     Route: 048
     Dates: end: 20160420
  2. MIRTAZAPINE. [Interacting]
     Active Substance: MIRTAZAPINE
     Route: 048
  3. FLUDEX [Interacting]
     Active Substance: INDAPAMIDE
     Indication: HYPERTENSION
     Dosage: 1.5 MG PROLONGED RELEASE FILM COATED TABLET
     Route: 048
     Dates: end: 20160420
  4. AMOXICILLIN. [Concomitant]
     Active Substance: AMOXICILLIN
     Dates: start: 20160419
  5. EFFERALGAN [Concomitant]
     Active Substance: ACETAMINOPHEN

REACTIONS (4)
  - Hypokalaemia [Recovered/Resolved]
  - Hyponatraemia [Recovering/Resolving]
  - Electrocardiogram abnormal [Recovered/Resolved]
  - Drug interaction [Recovered/Resolved]

NARRATIVE: CASE EVENT DATE: 20160420
